FAERS Safety Report 11458796 (Version 1)
Quarter: 2015Q3

REPORT INFORMATION
  Report Type: Spontaneous
  Country: US (occurrence: US)
  Receive Date: 20150904
  Receipt Date: 20150904
  Transmission Date: 20151125
  Serious: Yes (Other)
  Sender: FDA-Public Use
  Company Number: US-TARO-2015TAR00815

PATIENT
  Age: 33 Year
  Sex: Female
  Weight: 61.22 kg

DRUGS (3)
  1. LIDOCAINE OINTMENT USP 5% (UNFLAVORED) [Suspect]
     Active Substance: LIDOCAINE
     Indication: HAEMORRHOIDS
     Dosage: UNK, UP TO 3X/DAY
     Route: 054
     Dates: start: 20150720, end: 20150721
  2. OMEPRAZOLE. [Concomitant]
     Active Substance: OMEPRAZOLE
     Indication: DYSPEPSIA
     Dosage: UNK, AS NEEDED
  3. UNSPECIFIED PRENATAL VITAMIN(S) [Concomitant]

REACTIONS (5)
  - Off label use [Recovered/Resolved]
  - Product use issue [Recovered/Resolved]
  - Foetal death [Not Recovered/Not Resolved]
  - Foetal exposure during pregnancy [Recovered/Resolved]
  - Feeling abnormal [Recovering/Resolving]

NARRATIVE: CASE EVENT DATE: 20150720
